FAERS Safety Report 13769918 (Version 1)
Quarter: 2017Q3

REPORT INFORMATION
  Report Type: Spontaneous
  Country: GB (occurrence: GB)
  Receive Date: 20170719
  Receipt Date: 20170719
  Transmission Date: 20171127
  Serious: Yes (Life-Threatening, Hospitalization, Other)
  Sender: FDA-Public Use
  Company Number: GB-GILEAD-2017-0283999

PATIENT
  Age: 75 Year
  Sex: Male
  Weight: 104 kg

DRUGS (13)
  1. NICORANDIL [Concomitant]
     Active Substance: NICORANDIL
     Indication: ANGINA PECTORIS
  2. RAMIPRIL. [Concomitant]
     Active Substance: RAMIPRIL
  3. FUROSEMIDE. [Concomitant]
     Active Substance: FUROSEMIDE
  4. BISOPROLOL FUMARATE. [Concomitant]
     Active Substance: BISOPROLOL FUMARATE
     Indication: ANGINA PECTORIS
  5. TAMSULOSIN HYDROCHLORIDE. [Concomitant]
     Active Substance: TAMSULOSIN HYDROCHLORIDE
  6. ACETYLSALICYLIC ACID [Concomitant]
     Active Substance: ASPIRIN
  7. ALOGLIPTIN. [Concomitant]
     Active Substance: ALOGLIPTIN
  8. ATORVASTATIN [Concomitant]
     Active Substance: ATORVASTATIN
  9. ISOSORBIDE MONONITRATE. [Concomitant]
     Active Substance: ISOSORBIDE MONONITRATE
     Indication: ANGINA PECTORIS
  10. RANEXA [Suspect]
     Active Substance: RANOLAZINE
     Indication: ANGINA PECTORIS
     Route: 048
     Dates: start: 20170321, end: 20170330
  11. METFORMIN HYDROCHLORIDE. [Concomitant]
     Active Substance: METFORMIN HYDROCHLORIDE
  12. BETAHISTINE [Concomitant]
     Active Substance: BETAHISTINE
  13. LANSOPRAZOLE. [Concomitant]
     Active Substance: LANSOPRAZOLE

REACTIONS (1)
  - Generalised tonic-clonic seizure [Recovered/Resolved with Sequelae]

NARRATIVE: CASE EVENT DATE: 20170330
